FAERS Safety Report 11864577 (Version 1)
Quarter: 2015Q4

REPORT INFORMATION
  Report Type: Report from Study
  Country: US (occurrence: US)
  Receive Date: 20151223
  Receipt Date: 20151223
  Transmission Date: 20160305
  Serious: Yes (Hospitalization)
  Sender: FDA-Public Use
  Company Number: US-B.I. PHARMACEUTICALS,INC./RIDGEFIELD-2015-BI-51018BP

PATIENT
  Sex: Male

DRUGS (1)
  1. OFEV [Suspect]
     Active Substance: NINTEDANIB
     Indication: IDIOPATHIC PULMONARY FIBROSIS
     Dosage: 300 MG
     Route: 048
     Dates: start: 20150706

REACTIONS (6)
  - Pyrexia [Unknown]
  - Diarrhoea [Unknown]
  - Dyspnoea [Unknown]
  - Confusional state [Unknown]
  - Nasopharyngitis [Unknown]
  - Cough [Unknown]
